FAERS Safety Report 15300705 (Version 1)
Quarter: 2018Q3

REPORT INFORMATION
  Report Type: Report from Study
  Country: BR (occurrence: BR)
  Receive Date: 20180821
  Receipt Date: 20180821
  Transmission Date: 20181010
  Serious: Yes (Other)
  Sender: FDA-Public Use
  Company Number: PHHY2018BR077110

PATIENT
  Age: 39 Year
  Sex: Female
  Weight: 103 kg

DRUGS (1)
  1. COSENTYX [Suspect]
     Active Substance: SECUKINUMAB
     Indication: PSORIATIC ARTHROPATHY
     Dosage: 300 MG, QMO
     Route: 058
     Dates: start: 20170922

REACTIONS (16)
  - Wound [Recovered/Resolved]
  - Concomitant disease aggravated [Recovered/Resolved]
  - Vomiting [Recovered/Resolved]
  - Pneumonia [Unknown]
  - Red blood cell sedimentation rate abnormal [Not Recovered/Not Resolved]
  - Renal colic [Recovered/Resolved]
  - Fear [Unknown]
  - Abdominal pain upper [Recovered/Resolved]
  - Alanine aminotransferase abnormal [Not Recovered/Not Resolved]
  - Retching [Recovered/Resolved]
  - Skin fissures [Recovered/Resolved]
  - Nephrolithiasis [Not Recovered/Not Resolved]
  - Arthralgia [Recovering/Resolving]
  - Drug effect incomplete [Not Recovered/Not Resolved]
  - Hypokinesia [Unknown]
  - Aspartate aminotransferase abnormal [Not Recovered/Not Resolved]

NARRATIVE: CASE EVENT DATE: 201807
